FAERS Safety Report 5314820-2 (Version None)
Quarter: 2007Q2

REPORT INFORMATION
  Report Type: 
  Country: None (occurrence: None)
  Receive Date: 20070502
  Receipt Date: 20070423
  Transmission Date: 20071010
  Serious: Yes (Hospitalization)
  Sender: FDA-Public Use
  Company Number: FR-JNJFOC-20070405222

PATIENT
  Age: 6 Decade
  Sex: Female
  Weight: 96 kg

DRUGS (4)
  1. INFLIXIMAB [Suspect]
     Dosage: TEMPORARILY WITHHELD
     Route: 042
  2. INFLIXIMAB [Suspect]
     Route: 042
  3. INFLIXIMAB [Suspect]
     Indication: CROHN'S DISEASE
     Route: 042
  4. METHOTREXATE [Concomitant]
     Indication: CROHN'S DISEASE

REACTIONS (3)
  - PERICARDITIS [None]
  - PHLEBITIS [None]
  - PULMONARY EMBOLISM [None]
